FAERS Safety Report 6039939-2 (Version None)
Quarter: 2009Q1

REPORT INFORMATION
  Report Type: 
  Country: None (occurrence: None)
  Receive Date: 20090116
  Receipt Date: 20080627
  Transmission Date: 20090719
  Serious: Yes (Disabling)
  Sender: FDA-Public Use
  Company Number: US-BRISTOL-MYERS SQUIBB COMPANY-13927306

PATIENT
  Age: 62 Year
  Sex: Female
  Weight: 70 kg

DRUGS (2)
  1. ABILIFY [Suspect]
     Indication: BIPOLAR DISORDER
     Dosage: AT BEDTIME.
     Route: 048
     Dates: start: 20000101, end: 20070501
  2. LITHIUM [Concomitant]
     Dosage: AT BEDTIME
     Route: 048

REACTIONS (1)
  - TARDIVE DYSKINESIA [None]
